FAERS Safety Report 15429779 (Version 1)
Quarter: 2018Q3

REPORT INFORMATION
  Report Type: Spontaneous
  Country: IT (occurrence: IT)
  Receive Date: 20180926
  Receipt Date: 20180926
  Transmission Date: 20181010
  Serious: Yes (Other)
  Sender: FDA-Public Use
  Company Number: IT-PFIZER INC-2018377962

PATIENT
  Age: 36 Year
  Sex: Female
  Weight: 43 kg

DRUGS (4)
  1. TARGIN [Suspect]
     Active Substance: NALOXONE HYDROCHLORIDE\OXYCODONE HYDROCHLORIDE
     Dosage: 15 DF, SINGLE
     Route: 065
     Dates: start: 20180820, end: 20180820
  2. TACHIPIRINA [Suspect]
     Active Substance: ACETAMINOPHEN
     Dosage: 5 DF, SINGLE
     Route: 065
     Dates: start: 20180820, end: 20180820
  3. XANAX [Suspect]
     Active Substance: ALPRAZOLAM
     Dosage: 7 DF, SINGLE
     Route: 065
     Dates: start: 20180820, end: 20180820
  4. MYLICON INFANTS GAS RELIEF ORIGINAL [Suspect]
     Active Substance: DIMETHICONE
     Dosage: 1 UNK, SINGLE
     Route: 065
     Dates: start: 20180820, end: 20180820

REACTIONS (3)
  - Intentional self-injury [Unknown]
  - Vomiting [Unknown]
  - Intentional product misuse [Unknown]

NARRATIVE: CASE EVENT DATE: 20180820
